FAERS Safety Report 17351795 (Version 1)
Quarter: 2020Q1

REPORT INFORMATION
  Report Type: Spontaneous
  Country: FR (occurrence: FR)
  Receive Date: 20200130
  Receipt Date: 20200130
  Transmission Date: 20200409
  Serious: Yes (Other)
  Sender: FDA-Public Use
  Company Number: FR-ALEXION-A201919224

PATIENT
  Age: 74 Year
  Sex: Female
  Weight: 54.9 kg

DRUGS (2)
  1. SOLIRIS [Suspect]
     Active Substance: ECULIZUMAB
     Indication: OFF LABEL USE
  2. SOLIRIS [Suspect]
     Active Substance: ECULIZUMAB
     Indication: THROMBOTIC MICROANGIOPATHY
     Dosage: 900 MG, FOUR TIMES
     Route: 065
     Dates: start: 20191206, end: 20191227

REACTIONS (4)
  - Confusional state [Unknown]
  - Rash morbilliform [Unknown]
  - Toxic skin eruption [Unknown]
  - Off label use [Unknown]

NARRATIVE: CASE EVENT DATE: 20191206
